FAERS Safety Report 6520867-0 (Version None)
Quarter: 2009Q4

REPORT INFORMATION
  Report Type: 
  Country: None (occurrence: None)
  Receive Date: 20091229
  Receipt Date: 20091116
  Transmission Date: 20100525
  Serious: Yes (Other)
  Sender: FDA-Public Use
  Company Number: GB-SANOFI-AVENTIS-A01200707056

PATIENT
  Age: 0 Day
  Sex: Female

DRUGS (3)
  1. PARACETAMOL [Suspect]
     Indication: PAIN
     Route: 064
     Dates: end: 20060123
  2. ARAVA [Suspect]
     Indication: RHEUMATOID ARTHRITIS
     Route: 064
     Dates: start: 20040415, end: 20050701
  3. PREDNISOLONE [Suspect]
     Route: 064
     Dates: start: 20040404, end: 20060123

REACTIONS (4)
  - CARDIAC MURMUR [None]
  - CARDIAC VALVE DISEASE [None]
  - DRUG EXPOSURE DURING PREGNANCY [None]
  - PREMATURE BABY [None]
